FAERS Safety Report 7931836-8 (Version None)
Quarter: 2011Q4

REPORT INFORMATION
  Report Type: 
  Country: None (occurrence: None)
  Receive Date: 20111121
  Receipt Date: 20111115
  Transmission Date: 20120403
  Serious: Yes (Death, Hospitalization, Disabling, Other)
  Sender: FDA-Public Use
  Company Number: US-ASTRAZENECA-2011SE41290

PATIENT
  Age: 60 Year
  Sex: Female

DRUGS (1)
  1. CRESTOR [Suspect]
     Route: 048

REACTIONS (4)
  - BLOOD POTASSIUM INCREASED [None]
  - ARTERIOVENOUS FISTULA OCCLUSION [None]
  - IATROGENIC INJURY [None]
  - CARDIAC ARREST [None]
